FAERS Safety Report 23029253 (Version 2)
Quarter: 2024Q2

REPORT INFORMATION
  Report Type: Report from Study
  Country: CA (occurrence: CA)
  Receive Date: 20231004
  Receipt Date: 20240419
  Transmission Date: 20240715
  Serious: Yes (Death)
  Sender: FDA-Public Use
  Company Number: CA-002147023-NVSC2023CA068863

PATIENT
  Sex: Male

DRUGS (1)
  1. HYRIMOZ [Suspect]
     Active Substance: ADALIMUMAB-ADAZ
     Indication: Foetal exposure during pregnancy
     Dosage: UNK, MATERNAL DOSE: 40 MG, SUBCUTANEOUS
     Route: 064

REACTIONS (3)
  - Death neonatal [Fatal]
  - Premature labour [Fatal]
  - Foetal exposure during pregnancy [Fatal]
